FAERS Safety Report 6433466-6 (Version None)
Quarter: 2009Q4

REPORT INFORMATION
  Report Type: 
  Country: None (occurrence: None)
  Receive Date: 20091106
  Receipt Date: 20091106
  Transmission Date: 20100525
  Serious: Yes (Other)
  Sender: FDA-Public Use
  Company Number: None

PATIENT
  Age: 23 Year
  Sex: Male
  Weight: 102.9665 kg

DRUGS (2)
  1. DEPAKOTE [Suspect]
     Indication: DEPRESSION
     Dosage: 500 MG TWICE A DAY PO
     Route: 048
     Dates: start: 20091017, end: 20091029
  2. DEPAKOTE [Suspect]
     Indication: PERSONALITY CHANGE
     Dosage: 500 MG TWICE A DAY PO
     Route: 048
     Dates: start: 20091017, end: 20091029

REACTIONS (22)
  - ABASIA [None]
  - ABNORMAL BEHAVIOUR [None]
  - AGGRESSION [None]
  - ANXIETY [None]
  - CHEST PAIN [None]
  - CLAUSTROPHOBIA [None]
  - DRUG INEFFECTIVE [None]
  - EATING DISORDER [None]
  - FEELING ABNORMAL [None]
  - HYPOAESTHESIA [None]
  - IMPRISONMENT [None]
  - INTENTIONAL SELF-INJURY [None]
  - MALAISE [None]
  - MOVEMENT DISORDER [None]
  - MYALGIA [None]
  - PARTNER STRESS [None]
  - PYREXIA [None]
  - SELF-INJURIOUS IDEATION [None]
  - SKIN LACERATION [None]
  - TREMOR [None]
  - UNEVALUABLE EVENT [None]
  - WITHDRAWAL SYNDROME [None]
